FAERS Safety Report 25378797 (Version 1)
Quarter: 2025Q2

REPORT INFORMATION
  Report Type: Spontaneous
  Country: US (occurrence: US)
  Receive Date: 20250530
  Receipt Date: 20250530
  Transmission Date: 20250716
  Serious: No
  Sender: CIPLA
  Company Number: US-CIPLA LTD.-2024US04318

PATIENT

DRUGS (5)
  1. ALBUTEROL [Suspect]
     Active Substance: ALBUTEROL
     Indication: Asthma
     Route: 065
  2. ALBUTEROL [Suspect]
     Active Substance: ALBUTEROL
     Dosage: 2 PUFFS 4 TIMES A DAY
     Route: 065
  3. QVAR [Concomitant]
     Active Substance: BECLOMETHASONE DIPROPIONATE
     Indication: Asthma
     Dosage: 40 MICROGRAM, BID (40MCG, TWICE A DAY), INHALER (12 YEARS AGO)
     Route: 065
  4. FAMOTIDINE [Concomitant]
     Active Substance: FAMOTIDINE
     Indication: Gastrooesophageal reflux disease
     Dosage: 15 MILLIGRAM, QD (15 MG ONCE A DAY)
     Route: 065
  5. VENTOLIN [Concomitant]
     Active Substance: ALBUTEROL SULFATE
     Indication: Product used for unknown indication
     Route: 065

REACTIONS (2)
  - Incorrect dose administered [Unknown]
  - Device delivery system issue [Unknown]
